FAERS Safety Report 23729711 (Version 2)
Quarter: 2024Q2

REPORT INFORMATION
  Report Type: Spontaneous
  Country: US (occurrence: US)
  Receive Date: 20240411
  Receipt Date: 20240412
  Transmission Date: 20240716
  Serious: Yes (Life-Threatening, Hospitalization)
  Sender: FDA-Public Use
  Company Number: US-JNJFOC-20240421647

PATIENT
  Age: 49 Year
  Sex: Male

DRUGS (1)
  1. LOPERAMIDE HYDROCHLORIDE [Suspect]
     Active Substance: LOPERAMIDE HYDROCHLORIDE
     Indication: Diarrhoea
     Route: 065

REACTIONS (8)
  - Cardiac arrest [Recovering/Resolving]
  - Hypokalaemia [Unknown]
  - Hypomagnesaemia [Unknown]
  - Left ventricular dysfunction [Recovering/Resolving]
  - Overdose [Unknown]
  - Ventricular tachycardia [Recovered/Resolved]
  - Torsade de pointes [Unknown]
  - Drug withdrawal syndrome [Unknown]
